FAERS Safety Report 6616837-4 (Version None)
Quarter: 2010Q1

REPORT INFORMATION
  Report Type: 
  Country: None (occurrence: None)
  Receive Date: 20100301
  Receipt Date: 20100216
  Transmission Date: 20100710
  Serious: Yes (Hospitalization)
  Sender: FDA-Public Use
  Company Number: TCI2010A00576

PATIENT

DRUGS (8)
  1. ACTOS [Suspect]
     Indication: DIABETES MELLITUS
     Dosage: PRE ORAL
     Route: 048
     Dates: end: 20100201
  2. BASEN (VOGLIBOSE) [Concomitant]
  3. NIVADIL (NIVADIPINE) [Concomitant]
  4. NIPOLAZIN (MEQUITAZINE) [Concomitant]
  5. FAMOTIDINE [Concomitant]
  6. PURSENNID (SENNA ALEXANDRIA LEAF) [Concomitant]
  7. DEPAS (ETIZOLAM) [Concomitant]
  8. LOXONIN TAPE (LOXOPROFEN SODIUM) [Concomitant]

REACTIONS (1)
  - DYSKINESIA [None]
